FAERS Safety Report 7717030-4 (Version None)
Quarter: 2011Q3

REPORT INFORMATION
  Report Type: 
  Country: None (occurrence: None)
  Receive Date: 20110829
  Receipt Date: 20110819
  Transmission Date: 20111222
  Serious: Yes (Other)
  Sender: FDA-Public Use
  Company Number: US-AMGEN-USASP2011042594

PATIENT
  Age: 61 Year
  Sex: Female

DRUGS (1)
  1. ENBREL [Suspect]
     Indication: RHEUMATOID ARTHRITIS
     Dosage: UNK
     Dates: start: 20050531

REACTIONS (7)
  - VISUAL IMPAIRMENT [None]
  - PERIPHERAL VASCULAR DISORDER [None]
  - TREMOR [None]
  - ANIMAL SCRATCH [None]
  - BACK INJURY [None]
  - ARTHROPATHY [None]
  - INJECTION SITE HAEMORRHAGE [None]
